FAERS Safety Report 11465650 (Version 1)
Quarter: 2015Q3

REPORT INFORMATION
  Report Type: Spontaneous
  Country: DE (occurrence: DE)
  Receive Date: 20150907
  Receipt Date: 20150907
  Transmission Date: 20151125
  Serious: Yes (Hospitalization, Other)
  Sender: FDA-Public Use
  Company Number: DE-009507513-1508DEU007226

PATIENT
  Age: 60 Year
  Sex: Female
  Weight: 96 kg

DRUGS (30)
  1. CALCIUM ACETATE. [Concomitant]
     Active Substance: CALCIUM ACETATE
     Dosage: UNK, BID
     Dates: start: 20150806, end: 20150812
  2. CLEXANE (ENOXAPARIN SODIUM) [Concomitant]
     Active Substance: ENOXAPARIN SODIUM
     Dosage: 0.6 UNK, UNK
     Dates: start: 20150806, end: 20150812
  3. METOCLOPRAMIDE HYDROCHLORIDE. [Concomitant]
     Active Substance: METOCLOPRAMIDE HYDROCHLORIDE
     Dosage: 10 MG, UNK
     Dates: start: 20150806, end: 20150812
  4. NOXAFIL [Suspect]
     Active Substance: POSACONAZOLE
     Dosage: 300 MG, QD
     Route: 048
     Dates: start: 20150806, end: 20150809
  5. EUTHYROX [Concomitant]
     Active Substance: LEVOTHYROXINE SODIUM
     Dosage: 75 MICROGRAM, QD
     Dates: start: 20150806, end: 20150812
  6. SULTANOL [Concomitant]
     Active Substance: ALBUTEROL SULFATE
     Dosage: UNK
     Dates: start: 20150806, end: 20150812
  7. NOVALGIN (DIPYRONE) [Concomitant]
     Active Substance: DIPYRONE
     Dosage: 500 UNK, QID
     Dates: start: 20150806, end: 20150812
  8. PROGRAF [Concomitant]
     Active Substance: TACROLIMUS\TACROLIMUS ANHYDROUS
     Dosage: 1 MG, BID
     Dates: start: 20150811, end: 20150812
  9. ACIC [Concomitant]
     Dosage: 200 UNK, QD
     Dates: start: 20150806, end: 20150812
  10. COTRIM D.S. [Concomitant]
     Active Substance: SULFAMETHOXAZOLE\TRIMETHOPRIM
     Dosage: UNK, QD
  11. PANTOZOL [Concomitant]
     Active Substance: PANTOPRAZOLE SODIUM
     Dosage: 40 UNK,BID
     Dates: start: 20150806, end: 20150812
  12. SODIUM CHLORIDE. [Concomitant]
     Active Substance: SODIUM CHLORIDE
     Dosage: 0.9 %,  QD
     Dates: start: 20150806, end: 20150812
  13. OXYGESIC [Concomitant]
     Active Substance: OXYCODONE
     Dosage: 10 MG, QID
     Dates: start: 20150806, end: 20150812
  14. ZOPICLONE [Concomitant]
     Active Substance: ZOPICLONE
     Dosage: 7.5 UNK, QD
  15. NOXAFIL [Suspect]
     Active Substance: POSACONAZOLE
     Indication: FUNGAL INFECTION
     Dosage: 300 MG, BID
     Route: 048
     Dates: start: 20150804, end: 20150805
  16. PROGRAF [Concomitant]
     Active Substance: TACROLIMUS\TACROLIMUS ANHYDROUS
     Dosage: 0.5 MG, BID
     Dates: start: 20150806, end: 20150810
  17. LYRICA [Concomitant]
     Active Substance: PREGABALIN
     Dosage: 50 UNK, QD
     Dates: start: 20150806, end: 20150812
  18. FORTUM [Concomitant]
     Active Substance: CEFTAZIDIME
     Dosage: 2 G, UNK
     Dates: start: 20150806, end: 20150812
  19. SIMVAHEXAL [Concomitant]
     Active Substance: SIMVASTATIN
     Dosage: 20 UNK, QD
     Dates: start: 20150806, end: 20150812
  20. NOXAFIL [Suspect]
     Active Substance: POSACONAZOLE
     Dosage: 400 MG, QD
     Route: 048
     Dates: start: 20150810, end: 20150811
  21. DECORTIN [Concomitant]
     Active Substance: PREDNISONE
     Dosage: 20 MG, QD
     Dates: start: 20150806, end: 20150812
  22. ZITHROMAX [Concomitant]
     Active Substance: AZITHROMYCIN DIHYDRATE
     Dosage: 250 UNK, UNK
     Dates: start: 20150806, end: 20150812
  23. MAGNESIUM OPTOPAN [Concomitant]
     Dosage: UNK
     Dates: start: 20150806, end: 20150812
  24. HYDROCHLOROTHIAZIDE. [Concomitant]
     Active Substance: HYDROCHLOROTHIAZIDE
     Dosage: 25 UNK, QD
     Dates: start: 20150806, end: 20150812
  25. MOVICOL [Concomitant]
     Active Substance: POLYETHYLENE GLYCOL 3350\POTASSIUM CHLORIDE\SODIUM BICARBONATE\SODIUM CHLORIDE
     Dosage: UNK, BID
     Dates: start: 20150806, end: 20150812
  26. TARGIN [Concomitant]
     Active Substance: NALOXONE HYDROCHLORIDE\OXYCODONE HYDROCHLORIDE
     Dosage: 5 MG, BID
     Dates: start: 20150806, end: 20150812
  27. TOREM [Concomitant]
     Active Substance: TORSEMIDE
     Dosage: 10 UNK, BID
     Dates: start: 20150806, end: 20150812
  28. POTASSIUM (UNSPECIFIED) [Concomitant]
     Active Substance: POTASSIUM
     Dosage: UNK
     Dates: start: 20150806, end: 20150812
  29. CYMBALTA [Concomitant]
     Active Substance: DULOXETINE HYDROCHLORIDE
     Dosage: 60 UNK, QD
     Dates: start: 20150806, end: 20150812
  30. XARELTO [Concomitant]
     Active Substance: RIVAROXABAN
     Dosage: 20 UNK, BID
     Dates: start: 20150806, end: 20150812

REACTIONS (8)
  - Pain [Recovered/Resolved]
  - Acute kidney injury [Recovered/Resolved]
  - Dizziness [Recovered/Resolved]
  - Rash generalised [Recovered/Resolved]
  - Renal impairment [Recovered/Resolved]
  - Pruritus [Recovered/Resolved]
  - Tremor [Recovered/Resolved]
  - Vision blurred [Recovered/Resolved]

NARRATIVE: CASE EVENT DATE: 20150806
